FAERS Safety Report 4726058-8 (Version None)
Quarter: 2005Q3

REPORT INFORMATION
  Report Type: 
  Country: None (occurrence: None)
  Receive Date: 20050726
  Receipt Date: 20050726
  Transmission Date: 20060218
  Serious: Yes (Hospitalization)
  Sender: FDA-Public Use
  Company Number: None

PATIENT
  Age: 53 Year
  Sex: Male
  Weight: 108.8633 kg

DRUGS (12)
  1. OXCARBAZEPINE 300MG [Suspect]
     Indication: SCHIZOPHRENIA
     Dosage: 300MG BID ORAL
     Route: 048
     Dates: start: 20050126, end: 20050524
  2. HYDROCHLOROTHIAZIDE 25MG TAB [Suspect]
     Indication: HYPERTENSION
     Dosage: 25MG QD ORAL
     Route: 048
     Dates: start: 20040212, end: 20050524
  3. TRILEPTAL [Concomitant]
  4. RISPERDAL [Concomitant]
  5. PAXIL [Concomitant]
  6. COGENTIN [Concomitant]
  7. KLONOPIN [Concomitant]
  8. LISINOPRIL [Concomitant]
  9. PRILOSEC [Concomitant]
  10. PRAZOSIN HCL [Concomitant]
  11. ZANTAC [Concomitant]
  12. ZOCOR [Concomitant]

REACTIONS (2)
  - HYPOKALAEMIA [None]
  - HYPONATRAEMIA [None]
